FAERS Safety Report 10172461 (Version 2)
Quarter: 2014Q3

REPORT INFORMATION
  Report Type: Spontaneous
  Country: US (occurrence: US)
  Receive Date: 20140515
  Receipt Date: 20140903
  Transmission Date: 20150326
  Serious: Yes (Hospitalization)
  Sender: FDA-Public Use
  Company Number: US-BAYER-2014-066070

PATIENT
  Age: 45 Year
  Sex: Female

DRUGS (8)
  1. ZOLOFT [Concomitant]
     Active Substance: SERTRALINE HYDROCHLORIDE
     Dosage: 400 MG, UNK
  2. GADAVIST [Suspect]
     Active Substance: GADOBUTROL
     Indication: RADICULOPATHY
  3. GADAVIST [Suspect]
     Active Substance: GADOBUTROL
     Indication: SURGERY
  4. PERCOCET [OXYCODONE HYDROCHLORIDE,OXYCODONE TEREPHTHALATE,PARACETA [Concomitant]
     Dosage: 5 MG, UNK
  5. VICODIN [Concomitant]
     Active Substance: ACETAMINOPHEN\HYDROCODONE BITARTRATE
     Dosage: 10 MG, UNK
  6. GADAVIST [Suspect]
     Active Substance: GADOBUTROL
     Indication: DEFAECATION URGENCY
  7. ASPIRIN BAYER [Concomitant]
     Active Substance: ASPIRIN
     Dosage: 81 MG, UNK
  8. GADAVIST [Suspect]
     Active Substance: GADOBUTROL
     Indication: BACK PAIN
     Dosage: 10 ML, ONCE
     Dates: start: 20140502, end: 20140502

REACTIONS (2)
  - Respiratory disorder [Recovered/Resolved]
  - Swelling [Recovered/Resolved]

NARRATIVE: CASE EVENT DATE: 20140502
